FAERS Safety Report 10984596 (Version 2)
Quarter: 2015Q2

REPORT INFORMATION
  Report Type: Spontaneous
  Country: US (occurrence: US)
  Receive Date: 20150403
  Receipt Date: 20150525
  Transmission Date: 20150821
  Serious: No
  Sender: FDA-Public Use
  Company Number: US-JNJFOC-20130516094

PATIENT
  Age: 84 Year
  Sex: Female
  Weight: 72.58 kg

DRUGS (4)
  1. IMODIUM A-D [Suspect]
     Active Substance: LOPERAMIDE HYDROCHLORIDE
     Indication: IRRITABLE BOWEL SYNDROME
     Dosage: 2 TABLETS AFTER FIRST LOOSE STOOL. TAKING A THIRD TABLET IF THERE IS A SUBSEQUENT LOOSE STOOL
     Route: 048
  2. IMODIUM A-D [Suspect]
     Active Substance: LOPERAMIDE HYDROCHLORIDE
     Indication: DIARRHOEA
     Dosage: 2 TABLETS AFTER FIRST LOOSE STOOL. TAKING A THIRD TABLET IF THERE IS A SUBSEQUENT LOOSE STOOL
     Route: 048
  3. ECOTRIN [Concomitant]
     Active Substance: ASPIRIN
     Indication: PRODUCT USED FOR UNKNOWN INDICATION
     Dosage: FOR 16 YEARS; VASCULAR SURGEON RECOMMENDED
     Route: 065
  4. ALLEGRA [Concomitant]
     Active Substance: FEXOFENADINE HYDROCHLORIDE
     Indication: MULTIPLE ALLERGIES
     Route: 065
     Dates: start: 1992

REACTIONS (1)
  - Drug ineffective [Unknown]
